FAERS Safety Report 11292189 (Version 2)
Quarter: 2015Q3

REPORT INFORMATION
  Report Type: Report from Study
  Country: CN (occurrence: CN)
  Receive Date: 20150722
  Receipt Date: 20150729
  Transmission Date: 20151125
  Serious: No
  Sender: FDA-Public Use
  Company Number: CN-ASTELLAS-2015US026002

PATIENT
  Age: 46 Year
  Sex: Male

DRUGS (1)
  1. MICAFUNGIN [Suspect]
     Active Substance: MICAFUNGIN
     Indication: FUNGAL INFECTION
     Route: 042
     Dates: start: 20131230, end: 20131230

REACTIONS (2)
  - Wound complication [Not Recovered/Not Resolved]
  - Rales [Recovered/Resolved]

NARRATIVE: CASE EVENT DATE: 20131230
